FAERS Safety Report 4543625-5 (Version None)
Quarter: 2005Q1

REPORT INFORMATION
  Report Type: 
  Country: None (occurrence: None)
  Receive Date: 20050103
  Receipt Date: 20041222
  Transmission Date: 20050727
  Serious: Yes (Death)
  Sender: FDA-Public Use
  Company Number: 4846

PATIENT
  Age: 68 Year
  Sex: Male

DRUGS (5)
  1. HYCAMTIN [Suspect]
     Indication: LUNG NEOPLASM MALIGNANT
     Dosage: 1MGM2 PER DAY
     Route: 042
     Dates: start: 20041129, end: 20041202
  2. PENTAERYTHRITOL [Concomitant]
     Indication: LUNG NEOPLASM MALIGNANT
     Route: 065
  3. CARBOPLATIN [Concomitant]
     Indication: LUNG NEOPLASM MALIGNANT
     Route: 065
  4. ETOPOSIDE [Concomitant]
     Indication: LUNG NEOPLASM MALIGNANT
     Route: 065
  5. RADIOTHERAPY [Concomitant]
     Indication: LUNG NEOPLASM MALIGNANT
     Route: 065

REACTIONS (2)
  - CONDITION AGGRAVATED [None]
  - PLATELET COUNT DECREASED [None]
